FAERS Safety Report 5513595-1 (Version None)
Quarter: 2007Q4

REPORT INFORMATION
  Report Type: 
  Country: None (occurrence: None)
  Receive Date: 20071112
  Receipt Date: 20071016
  Transmission Date: 20080405
  Serious: No
  Sender: FDA-Public Use
  Company Number: US-BOEHRINGER INGELHEIM PHARMACEUTICALS, INC.-2007-BP-22906BP

PATIENT
  Age: 80 Year
  Sex: Male

DRUGS (17)
  1. SPIRIVA [Suspect]
     Indication: CHRONIC OBSTRUCTIVE PULMONARY DISEASE
     Route: 055
     Dates: start: 20060101
  2. ACCOLATE [Concomitant]
     Indication: EMPHYSEMA
  3. QVAR 40 [Concomitant]
     Indication: EMPHYSEMA
  4. ALBUTEROL SULFATE AND IPRATROPIUM BROMIDE [Concomitant]
     Indication: EMPHYSEMA
  5. NASACORT [Concomitant]
  6. PLAVIX [Concomitant]
  7. HYDROCHLOROTHIAZIDE [Concomitant]
     Indication: HYPERTENSION
  8. COZAAR [Concomitant]
     Indication: HYPERTENSION
  9. LIPITOR [Concomitant]
     Indication: BLOOD CHOLESTEROL INCREASED
  10. FOSAMAX [Concomitant]
     Indication: OSTEOPOROSIS
  11. CALCIUM [Concomitant]
     Indication: OSTEOPOROSIS
  12. FLOMAX [Concomitant]
     Indication: BENIGN PROSTATIC HYPERPLASIA
  13. PROSCAR [Concomitant]
     Indication: BENIGN PROSTATIC HYPERPLASIA
  14. TRELSTAR [Concomitant]
     Indication: PROSTATE CANCER
  15. CASODEX [Concomitant]
     Indication: PROSTATE CANCER
  16. ZOLOFT [Concomitant]
     Indication: ANXIETY
  17. M.V.I. [Concomitant]

REACTIONS (1)
  - DYSURIA [None]
